FAERS Safety Report 5126010-7 (Version None)
Quarter: 2006Q3

REPORT INFORMATION
  Report Type: 
  Country: None (occurrence: None)
  Receive Date: 20060822
  Receipt Date: 20060530
  Transmission Date: 20061208
  Serious: No
  Sender: FDA-Public Use
  Company Number: PHEH2006US07038

PATIENT
  Sex: Female

DRUGS (9)
  1. ENABLEX [Suspect]
     Indication: HYPERTONIC BLADDER
     Dosage: 7.5 MG, QD
     Dates: start: 20060523
  2. CARBIDOPA W/LEVODOPA (CARBIDOPA, LEVODOPA) [Concomitant]
  3. CELEBREX [Concomitant]
  4. COZAAR [Concomitant]
  5. VICODIN [Concomitant]
  6. LEVOXYL [Concomitant]
  7. PRILOSEC [Concomitant]
  8. WARFARIN SODIUM [Concomitant]
  9. ZYPREXA [Concomitant]

REACTIONS (2)
  - CONSTIPATION [None]
  - POLLAKIURIA [None]
